FAERS Safety Report 10149335 (Version 1)
Quarter: 2014Q2

REPORT INFORMATION
  Report Type: Spontaneous
  Country: US (occurrence: None)
  Receive Date: 20140430
  Receipt Date: 20140430
  Transmission Date: 20141212
  Serious: Yes (Hospitalization, Congenital Anomaly)
  Sender: FDA-Public Use
  Company Number: AUR-APL-2014-05115

PATIENT
  Sex: Female
  Weight: 1.02 kg

DRUGS (16)
  1. METFORMIN (METFORMIN) [Suspect]
     Indication: PRODUCT USED FOR UNKNOWN INDICATION
     Dosage: AFTER MORNING AND DINNER MEALS
  2. AMOXICILLIN (AMOXICILLIN) [Suspect]
     Indication: PRODUCT USED FOR UNKNOWN INDICATION
     Dosage: 1500MG (500 MG, 3 IN 1 D)
  3. MOTRIN (IBUPROFEN) [Suspect]
     Indication: PAIN
     Dosage: 800MG EVERY 6-8 HOURS, TRANSPLACENTAL
  4. NADOLOL (NADOLOL) [Suspect]
     Indication: PRODUCT USED FOR UNKNOWN INDICATION
     Dosage: 80MG (40MG, 2 IN 1 D)
  5. HYDROCORTISONE ACETATE (HYDROCORTISONE ACETATE) [Suspect]
     Indication: PRODUCT USED FOR UNKNOWN INDICATION
     Dosage: 5% (2.5 %, 2 IN 1 D) TRANSPLACENTAL
  6. TOPAMAX (TOPIRMATE) [Suspect]
     Indication: MIGRAINE
     Dosage: 400MG (100MG, 4 IN 1 D)
     Route: 064
     Dates: start: 200409, end: 200712
  7. TYLENOL 3 (PARACETAMOL) [Suspect]
     Indication: PAIN
     Dosage: 1 TO 2 TABLETS EVERY 4-6 HOURS
     Route: 064
  8. IMITREX (SUMATRIPTAN) [Suspect]
     Indication: MIGRAINE
     Dosage: 100MG, AS REQUIRED), TRANSPLACENTAL)
  9. PHENERGAN (PROMETHAZINE) [Suspect]
     Indication: VOMITING
     Dosage: 50MG (25MG, 1 IN 12 HR TRANSPLACENTAL
  10. DILAUDID (HYDROMORPHONE HYDROCHLORIDE) [Suspect]
     Indication: MIGRAINE
     Dosage: 16MG (4MG, 1 IN 6HR), TRANSPLACENTAL
  11. DILAUDID (HYDROMORPHONE HYDROCHLORIDE) [Suspect]
     Indication: PAIN
     Dosage: 16MG (4MG, 1 IN 6HR), TRANSPLACENTAL
  12. DILAUDID (HYDROMORPHONE HYDROCHLORIDE) [Suspect]
     Indication: HEADACHE
     Dosage: 16MG (4MG, 1 IN 6HR), TRANSPLACENTAL
  13. KENALOG (TRIAMCINOLONE ACETONIDE) [Suspect]
     Indication: PRODUCT USED FOR UNKNOWN INDICATION
  14. XYLOCAINE (LIDOCAINE) [Suspect]
     Indication: PRODUCT USED FOR UNKNOWN INDICATION
     Route: 064
  15. CLARITIN (GLICLAZIDE) [Suspect]
     Indication: HYPERSENSITIVITY
     Dosage: 10MG (10MG, 1 IN 1 D)
  16. CALCIUM W/MAGNESIUM (CALCIUM W/MAGNESIUM) [Concomitant]

REACTIONS (9)
  - Foetal exposure during pregnancy [None]
  - Exomphalos [None]
  - Premature baby [None]
  - Abdominal hernia [None]
  - Caesarean section [None]
  - Respiratory distress [None]
  - Congenital anomaly [None]
  - Liver disorder [None]
  - Fibrosis [None]
